FAERS Safety Report 21385926 (Version 1)
Quarter: 2022Q3

REPORT INFORMATION
  Report Type: Spontaneous
  Country: NZ (occurrence: NZ)
  Receive Date: 20220928
  Receipt Date: 20220928
  Transmission Date: 20221027
  Serious: Yes (Hospitalization)
  Sender: FDA-Public Use
  Company Number: NZ-MYLANLABS-2022M1096766

PATIENT
  Sex: Female

DRUGS (3)
  1. CLOZARIL [Suspect]
     Active Substance: CLOZAPINE
     Indication: Schizophrenia
     Dosage: UNK
     Route: 048
     Dates: start: 20200323
  2. CLOZARIL [Suspect]
     Active Substance: CLOZAPINE
     Dosage: UNK, FROM FEB (DOWN TO 300MG)
     Route: 048
  3. CLOZARIL [Suspect]
     Active Substance: CLOZAPINE
     Dosage: CONSISTENT REDUCTIONS (BY 25MG EVERY MONTH)
     Route: 048
     Dates: start: 202105, end: 20220922

REACTIONS (2)
  - Catatonia [Unknown]
  - Drug ineffective [Unknown]
